FAERS Safety Report 4536647-1 (Version None)
Quarter: 2004Q4

REPORT INFORMATION
  Report Type: 
  Country: None (occurrence: None)
  Receive Date: 20041220
  Receipt Date: 20041206
  Transmission Date: 20050328
  Serious: Yes (Life-Threatening, Hospitalization, Other)
  Sender: FDA-Public Use
  Company Number: HQWYE855208DEC04

PATIENT
  Sex: Female

DRUGS (2)
  1. PROTONIX [Suspect]
  2. DIGOXIN [Suspect]

REACTIONS (1)
  - DRUG INTERACTION [None]
